FAERS Safety Report 5955729-0 (Version None)
Quarter: 2008Q4

REPORT INFORMATION
  Report Type: 
  Country: None (occurrence: None)
  Receive Date: 20081117
  Receipt Date: 20081111
  Transmission Date: 20090506
  Serious: Yes (Other)
  Sender: FDA-Public Use
  Company Number: US-ROXANE LABORATORIES, INC.-2008-RO-00213RO

PATIENT
  Age: 24 Year
  Sex: Male

DRUGS (9)
  1. METHOTREXATE [Suspect]
     Indication: CHEMOTHERAPY
     Route: 037
  2. CYCLOPHOSPHAMIDE [Suspect]
     Indication: CHEMOTHERAPY
  3. DEXAMETHASONE 0.5MG TAB [Suspect]
     Indication: CHEMOTHERAPY
  4. VINCRISTINE [Suspect]
     Indication: CHEMOTHERAPY
  5. ADRIAMYCIN PFS [Suspect]
     Indication: CHEMOTHERAPY
  6. ELSPAR [Suspect]
     Indication: CHEMOTHERAPY
  7. PREDNISOLONE [Suspect]
     Indication: CHEMOTHERAPY
  8. CYTARABINE [Suspect]
     Indication: CHEMOTHERAPY
     Route: 037
  9. TRIPLE DRUG THERAPY [Suspect]
     Indication: CHEMOTHERAPY

REACTIONS (1)
  - NEUROTOXICITY [None]
